FAERS Safety Report 7712539-1 (Version None)
Quarter: 2011Q3

REPORT INFORMATION
  Report Type: 
  Country: None (occurrence: None)
  Receive Date: 20110822
  Receipt Date: 20110805
  Transmission Date: 20111222
  Serious: Yes (Death)
  Sender: FDA-Public Use
  Company Number: 2011MA011389

PATIENT
  Age: 77 Year
  Sex: Female

DRUGS (4)
  1. AMLODIPINE [Suspect]
     Indication: HYPERTENSION
     Dosage: 0.17 MG/KG
  2. O-DESMETHYLVENLAFAXINE (NO PREF. NAME) [Suspect]
     Dosage: 0.52 MG/KG
  3. VENLAFAXINE HYDROCHLORIDE [Suspect]
     Indication: DEPRESSION
     Dosage: 0.16 MG/KG
  4. FLUCONAZOLE [Suspect]

REACTIONS (7)
  - HYPOTENSION [None]
  - ASTHENIA [None]
  - DRUG INTERACTION [None]
  - DIZZINESS [None]
  - DRUG LEVEL ABOVE THERAPEUTIC [None]
  - TOXICITY TO VARIOUS AGENTS [None]
  - ASPHYXIA [None]
